FAERS Safety Report 5991468-8 (Version None)
Quarter: 2008Q4

REPORT INFORMATION
  Report Type: 
  Country: None (occurrence: None)
  Receive Date: 20081211
  Receipt Date: 20081209
  Transmission Date: 20090506
  Serious: Yes (Life-Threatening, Disabling, Other)
  Sender: FDA-Public Use
  Company Number: JP-ASTRAZENECA-2008AP08767

PATIENT
  Age: 86 Year
  Sex: Female

DRUGS (1)
  1. IRESSA [Suspect]
     Indication: LUNG NEOPLASM MALIGNANT
     Route: 048
     Dates: start: 20081023, end: 20081105

REACTIONS (4)
  - DEHYDRATION [None]
  - DIARRHOEA [None]
  - GASTRIC PERFORATION [None]
  - PLATELET COUNT DECREASED [None]
